FAERS Safety Report 9962674 (Version 2)
Quarter: 2014Q1

REPORT INFORMATION
  Report Type: Report from Study
  Country: US (occurrence: US)
  Receive Date: 20140305
  Receipt Date: 20140305
  Transmission Date: 20141002
  Serious: No
  Sender: FDA-Public Use
  Company Number: US-ABBVIE-13P-163-1052280-00

PATIENT
  Age: 31 Year
  Sex: Female

DRUGS (16)
  1. HUMIRA [Suspect]
     Indication: ANKYLOSING SPONDYLITIS
     Dates: start: 20121219, end: 20130103
  2. AMITRIPTYLINE [Concomitant]
     Indication: CYSTITIS INTERSTITIAL
  3. ALPRAZOLAM [Concomitant]
     Indication: ANXIETY
  4. FLUOXETINE [Concomitant]
     Indication: ANXIETY
  5. DIPHENHYDRAMINE [Concomitant]
     Indication: INSOMNIA
  6. VITAMIN B12 [Concomitant]
     Indication: VITAMIN B12 DECREASED
  7. IRON [Concomitant]
     Indication: ANAEMIA
  8. IRON [Concomitant]
     Indication: BLOOD IRON DECREASED
  9. FENOFIBRATE [Concomitant]
     Indication: BLOOD CHOLESTEROL INCREASED
  10. PRILOSEC [Concomitant]
     Indication: GASTROOESOPHAGEAL REFLUX DISEASE
  11. VITAMIN D [Concomitant]
     Indication: VITAMIN D DECREASED
  12. VITAMIN D [Concomitant]
  13. CYMBALTA [Concomitant]
     Indication: ANKYLOSING SPONDYLITIS
  14. GABAPENTIN [Concomitant]
     Indication: ANKYLOSING SPONDYLITIS
  15. TRI-SPRINTEC [Concomitant]
     Indication: CONTRACEPTION
  16. ASA [Concomitant]
     Indication: PLATELET COUNT INCREASED

REACTIONS (10)
  - Fatigue [Recovering/Resolving]
  - Pyrexia [Unknown]
  - Rhinorrhoea [Recovering/Resolving]
  - Ear pain [Recovering/Resolving]
  - Oropharyngeal pain [Recovering/Resolving]
  - Cough [Recovering/Resolving]
  - Sinusitis [Recovering/Resolving]
  - Wheezing [Recovering/Resolving]
  - Pneumonia [Recovering/Resolving]
  - Urinary tract infection [Recovering/Resolving]
